FAERS Safety Report 19776396 (Version 1)
Quarter: 2021Q3

REPORT INFORMATION
  Report Type: Spontaneous
  Country: CN (occurrence: CN)
  Receive Date: 20210902
  Receipt Date: 20210902
  Transmission Date: 20211014
  Serious: Yes (Other)
  Sender: FDA-Public Use
  Company Number: CN-009507513-2108CHN007364

PATIENT
  Age: 87 Year
  Sex: Female
  Weight: 36 kg

DRUGS (2)
  1. TIENAM [Suspect]
     Active Substance: CILASTATIN SODIUM\IMIPENEM
     Indication: FEBRILE INFECTION
     Dosage: 500 MG, EVERY 8 HOURS (Q8H)
     Route: 041
     Dates: start: 20210713, end: 20210722
  2. GLUCOSE;LINEZOLID [Suspect]
     Active Substance: LINEZOLID
     Indication: FEBRILE INFECTION
     Dosage: 0.6 G, Q12H
     Route: 041
     Dates: start: 20210713, end: 20210719

REACTIONS (4)
  - Gastrointestinal carcinoma [Unknown]
  - Platelet count decreased [Recovering/Resolving]
  - Full blood count decreased [Unknown]
  - Ecchymosis [Unknown]

NARRATIVE: CASE EVENT DATE: 20210719
